FAERS Safety Report 14994139 (Version 3)
Quarter: 2018Q2

REPORT INFORMATION
  Report Type: Spontaneous
  Country: US (occurrence: US)
  Receive Date: 20180611
  Receipt Date: 20180628
  Transmission Date: 20180711
  Serious: Yes (Other)
  Sender: FDA-Public Use
  Company Number: US-RECORDATI RARE DISEASES INC.-US-R13005-18-00148

PATIENT
  Age: 17 Year
  Sex: Female

DRUGS (2)
  1. HEMIN [Suspect]
     Active Substance: HEMIN
     Indication: PORPHYRIA ACUTE
     Route: 065
     Dates: start: 201704, end: 201705
  2. HEMIN [Suspect]
     Active Substance: HEMIN
     Route: 042
     Dates: start: 20180529, end: 20180601

REACTIONS (3)
  - Pancytopenia [Recovered/Resolved]
  - Aplastic anaemia [Unknown]
  - Therapeutic response unexpected [Unknown]

NARRATIVE: CASE EVENT DATE: 20170724
